FAERS Safety Report 11345052 (Version 1)
Quarter: 2015Q3

REPORT INFORMATION
  Report Type: Spontaneous
  Country: US (occurrence: None)
  Receive Date: 20150805
  Receipt Date: 20150805
  Transmission Date: 20151125
  Serious: No
  Sender: FDA-Public Use
  Company Number: None

PATIENT
  Age: 19 Year
  Sex: Male

DRUGS (1)
  1. PREGABALIN. [Suspect]
     Active Substance: PREGABALIN
     Indication: DEPRESSION
     Route: 048
     Dates: start: 20141023

REACTIONS (4)
  - Incorrect dose administered [None]
  - Drug dose omission [None]
  - Depressed level of consciousness [None]
  - Somnolence [None]

NARRATIVE: CASE EVENT DATE: 20141023
